FAERS Safety Report 9367628 (Version 2)
Quarter: 2014Q2

REPORT INFORMATION
  Report Type: Spontaneous
  Country: US (occurrence: US)
  Receive Date: 20130625
  Receipt Date: 20140404
  Transmission Date: 20141212
  Serious: Yes (Hospitalization)
  Sender: FDA-Public Use
  Company Number: US-B.I. PHARMACEUTICALS,INC./RIDGEFIELD-2013-BI-17943BP

PATIENT
  Sex: Female
  Weight: 83.91 kg

DRUGS (10)
  1. PRADAXA [Suspect]
     Indication: ATRIAL FIBRILLATION
     Dosage: 300 MG
     Route: 065
     Dates: start: 201104, end: 20111211
  2. METFORMIN [Concomitant]
     Indication: DIABETES MELLITUS
     Dosage: 1000 MG
     Route: 048
  3. CAPTOPRIL [Concomitant]
     Dosage: 200 MG
     Route: 048
  4. HYDRALAZINE [Concomitant]
     Indication: HYPERTENSION
     Dosage: 100 MG
     Route: 048
  5. LASIX [Concomitant]
     Dosage: 40 MG
     Route: 048
  6. LIPITOR [Concomitant]
     Indication: DYSLIPIDAEMIA
     Dosage: 10 MG
     Route: 048
  7. MELOXICAM [Concomitant]
     Dosage: 15 MG
     Route: 048
  8. THYROXINE [Concomitant]
     Route: 065
  9. PRIMIDONE [Concomitant]
     Dosage: 50 MG
     Route: 048
  10. AMLODIPINE [Concomitant]
     Indication: HYPERTENSION
     Dosage: 2.5 MG
     Route: 048

REACTIONS (5)
  - Gastrointestinal haemorrhage [Recovered/Resolved]
  - Haemorrhagic anaemia [Unknown]
  - Coagulopathy [Unknown]
  - Renal failure acute [Unknown]
  - Epistaxis [Unknown]
